FAERS Safety Report 5308358-6 (Version None)
Quarter: 2007Q1

REPORT INFORMATION
  Report Type: 
  Country: None (occurrence: None)
  Receive Date: 20070201
  Receipt Date: 20061226
  Transmission Date: 20070707
  Serious: No
  Sender: FDA-Public Use
  Company Number: 2006PV027366

PATIENT
  Age: 60 Year
  Sex: Male
  Weight: 146.0582 kg

DRUGS (4)
  1. BYETTA [Suspect]
     Indication: DIABETES MELLITUS NON-INSULIN-DEPENDENT
     Dosage: 5 MCG, BID, SC
     Route: 058
     Dates: start: 20061221
  2. GLUICOTROL [Concomitant]
  3. ACTOS [Concomitant]
  4. GLUCOPHAGE [Concomitant]

REACTIONS (4)
  - FEAR OF FALLING [None]
  - HEADACHE [None]
  - NAUSEA [None]
  - VOMITING [None]
